FAERS Safety Report 14024893 (Version 1)
Quarter: 2017Q3

REPORT INFORMATION
  Report Type: Spontaneous
  Country: US (occurrence: US)
  Receive Date: 20170929
  Receipt Date: 20170929
  Transmission Date: 20171128
  Serious: Yes (Hospitalization)
  Sender: FDA-Public Use
  Company Number: US-FRESENIUS KABI-FK201708115

PATIENT
  Age: 24 Year
  Sex: Female

DRUGS (4)
  1. IDARUBICIN [Concomitant]
     Active Substance: IDARUBICIN
     Indication: ACUTE MYELOID LEUKAEMIA
     Route: 042
  2. CYTARABINE (MANUFACTURER UNKNOWN) [Suspect]
     Active Substance: CYTARABINE
     Indication: ACUTE MYELOID LEUKAEMIA
     Route: 065
  3. POSACONAZOLE [Suspect]
     Active Substance: POSACONAZOLE
     Indication: ANTIFUNGAL PROPHYLAXIS
     Route: 065
  4. CYTARABINE (MANUFACTURER UNKNOWN) [Suspect]
     Active Substance: CYTARABINE
     Route: 042

REACTIONS (3)
  - Drug interaction [Unknown]
  - Bone marrow failure [Unknown]
  - Palmar-plantar erythrodysaesthesia syndrome [Unknown]
